APPROVED DRUG PRODUCT: DEXTROMETHORPHAN POLISTIREX
Active Ingredient: DEXTROMETHORPHAN POLISTIREX
Strength: EQ 30MG HYDROBROMIDE/5ML
Dosage Form/Route: SUSPENSION, EXTENDED RELEASE;ORAL
Application: A091135 | Product #001
Applicant: TRIS PHARMA INC
Approved: May 25, 2012 | RLD: No | RS: No | Type: OTC